FAERS Safety Report 6254183-1 (Version None)
Quarter: 2009Q2

REPORT INFORMATION
  Report Type: 
  Country: None (occurrence: None)
  Receive Date: 20090626
  Receipt Date: 20090626
  Transmission Date: 20091009
  Serious: No
  Sender: FDA-Public Use
  Company Number: None

PATIENT
  Sex: Female

DRUGS (5)
  1. BUDEPRION 150MG SR 150MG TEVA [Suspect]
     Indication: DEPRESSION
     Dosage: 2 TABS QD PO
     Route: 048
     Dates: start: 20081205, end: 20090107
  2. CYMBALTA [Concomitant]
  3. ADDERALL XR 20 [Concomitant]
  4. RISPERDAL [Concomitant]
  5. AMBIEN [Concomitant]

REACTIONS (4)
  - DEPRESSION [None]
  - DISEASE RECURRENCE [None]
  - MOOD ALTERED [None]
  - PRODUCT SUBSTITUTION ISSUE [None]
